FAERS Safety Report 18285797 (Version 4)
Quarter: 2020Q4

REPORT INFORMATION
  Report Type: Report from Study
  Country: None (occurrence: AU)
  Receive Date: 20200919
  Receipt Date: 20201222
  Transmission Date: 20210113
  Serious: Yes (Hospitalization)
  Sender: FDA-Public Use
  Company Number: AU-ABBVIE-20K-008-3565538-00

PATIENT
  Age: 39 Year
  Sex: Female

DRUGS (1)
  1. HUMIRA [Suspect]
     Active Substance: ADALIMUMAB
     Indication: ANKYLOSING SPONDYLITIS
     Route: 058
     Dates: start: 20200902

REACTIONS (7)
  - Incorrect dose administered [Recovering/Resolving]
  - Seizure [Recovering/Resolving]
  - Injection site pain [Recovered/Resolved]
  - Wrong technique in product usage process [Recovering/Resolving]
  - Injection site pain [Not Recovered/Not Resolved]
  - Weight decreased [Unknown]
  - Nerve injury [Recovering/Resolving]

NARRATIVE: CASE EVENT DATE: 202009
